FAERS Safety Report 4861447-2 (Version None)
Quarter: 2005Q4

REPORT INFORMATION
  Report Type: 
  Country: None (occurrence: None)
  Receive Date: 20051220
  Receipt Date: 20051209
  Transmission Date: 20060501
  Serious: Yes (Other)
  Sender: FDA-Public Use
  Company Number: CA-BRISTOL-MYERS SQUIBB COMPANY-13219118

PATIENT
  Age: 84 Year
  Sex: Female

DRUGS (11)
  1. TEQUIN [Suspect]
     Route: 042
  2. ARICEPT [Concomitant]
     Route: 048
  3. DOCUSATE [Concomitant]
     Route: 048
  4. ASPIRIN [Concomitant]
     Route: 048
  5. LACTULOSE [Concomitant]
     Route: 048
  6. LEVOFLOXACIN [Concomitant]
  7. LIPITOR [Concomitant]
     Route: 048
  8. MACROBID [Concomitant]
     Route: 048
  9. SALBUTAMOL [Concomitant]
     Route: 055
  10. TRAZODONE HCL [Concomitant]
     Route: 048
  11. VENLAFAXINE HCL [Concomitant]
     Route: 048

REACTIONS (1)
  - HYPERGLYCAEMIA [None]
